FAERS Safety Report 9344234 (Version 1)
Quarter: 2013Q2

REPORT INFORMATION
  Report Type: Spontaneous
  Country: US (occurrence: US)
  Receive Date: 20130612
  Receipt Date: 20130612
  Transmission Date: 20140414
  Serious: Yes (Other)
  Sender: FDA-Public Use
  Company Number: US-JNJFOC-20130601656

PATIENT
  Age: 48 Year
  Sex: Female

DRUGS (5)
  1. GOLIMUMAB [Suspect]
     Indication: SPONDYLOARTHROPATHY
     Route: 058
  2. GOLIMUMAB [Suspect]
     Indication: SPONDYLOARTHROPATHY
     Route: 058
     Dates: end: 201110
  3. GOLIMUMAB [Suspect]
     Indication: SPONDYLOARTHROPATHY
     Route: 058
     Dates: start: 201111
  4. INFLIXIMAB [Suspect]
     Indication: SPONDYLOARTHROPATHY
     Route: 042
  5. LEFLUNOMIDE [Concomitant]
     Route: 065

REACTIONS (2)
  - Psoriasis [Unknown]
  - Dermatitis bullous [Unknown]
